FAERS Safety Report 9199732 (Version 2)
Quarter: 2013Q2

REPORT INFORMATION
  Report Type: Spontaneous
  Country: US (occurrence: US)
  Receive Date: 20130329
  Receipt Date: 20130403
  Transmission Date: 20140414
  Serious: Yes (Other)
  Sender: FDA-Public Use
  Company Number: US-ALEXION-A201300563

PATIENT
  Age: 74 Year
  Sex: Male
  Weight: 98.8 kg

DRUGS (12)
  1. SOLIRIS 300MG [Suspect]
     Indication: PAROXYSMAL NOCTURNAL HAEMOGLOBINURIA
     Dosage: 600 MG, QW X 4
     Route: 042
     Dates: start: 20110802
  2. SOLIRIS 300MG [Suspect]
     Dosage: 900 MG, Q2W
     Route: 042
     Dates: start: 20110830
  3. ASPIRIN [Concomitant]
     Dosage: 325 MG, QD
     Route: 048
  4. DANAZOL [Concomitant]
     Dosage: 200 MG, TID
     Route: 048
  5. FOLIC ACID [Concomitant]
     Dosage: 1 MG, QD
     Route: 048
  6. LYRICA [Concomitant]
     Dosage: 75 MG, BID
     Route: 048
  7. MULTIVITAMIN [Concomitant]
     Dosage: UNK, QD
     Route: 048
  8. NITRO [Concomitant]
     Dosage: UNK, PRN
     Route: 060
  9. PRAVASTATIN [Concomitant]
     Dosage: 20 MG, QD
     Route: 048
  10. COMPAZINE [Concomitant]
     Indication: NAUSEA
     Dosage: UNK, TID PRN
     Route: 048
  11. SOTALOL [Concomitant]
     Dosage: 160 MG, BID
     Route: 048
  12. VITAMIN B12 [Concomitant]
     Dosage: 1200 ?G, QD
     Route: 048

REACTIONS (1)
  - Cataract [Recovered/Resolved]
